FAERS Safety Report 12580064 (Version 1)
Quarter: 2016Q3

REPORT INFORMATION
  Report Type: Spontaneous
  Country: CH (occurrence: CH)
  Receive Date: 20160721
  Receipt Date: 20160721
  Transmission Date: 20161109
  Serious: Yes (Hospitalization)
  Sender: FDA-Public Use
  Company Number: CH-009507513-1607CHE007064

PATIENT
  Age: 60 Year
  Sex: Male

DRUGS (9)
  1. SANDOSTATIN [Suspect]
     Active Substance: OCTREOTIDE ACETATE
     Indication: LIVER TRANSPLANT
     Dosage: 50 MICROGRAM, QD
     Route: 058
     Dates: start: 20160621, end: 2016
  2. VIMPAT [Suspect]
     Active Substance: LACOSAMIDE
     Indication: EPILEPSY
     Dosage: 200 MG, BID
     Route: 048
     Dates: start: 20160628
  3. CERTICAN [Concomitant]
     Active Substance: EVEROLIMUS
     Dosage: 3 MG, BID
     Route: 048
     Dates: start: 20160207
  4. KEPPRA [Concomitant]
     Active Substance: LEVETIRACETAM
     Dosage: 1 MG, BID
     Route: 048
     Dates: start: 20160628
  5. PROGRAF [Suspect]
     Active Substance: TACROLIMUS\TACROLIMUS ANHYDROUS
     Indication: LIVER TRANSPLANT
     Dosage: 1 MG, BID
     Route: 048
     Dates: start: 20160621, end: 2016
  6. NEXIUM [Concomitant]
     Active Substance: ESOMEPRAZOLE MAGNESIUM
     Dosage: 20 MG, QD
     Route: 048
  7. MEROPENEM. [Concomitant]
     Active Substance: MEROPENEM
     Dosage: 1 G, BID
     Dates: start: 20160627, end: 2016
  8. PREDNISONE. [Suspect]
     Active Substance: PREDNISONE
     Indication: LIVER TRANSPLANT
     Dosage: 15 MG, QD
     Route: 048
     Dates: start: 20160621
  9. CANCIDAS [Suspect]
     Active Substance: CASPOFUNGIN ACETATE
     Indication: PNEUMONIA
     Dosage: 50 MG, QD
     Dates: start: 20160624, end: 2016

REACTIONS (2)
  - Bradycardia [Not Recovered/Not Resolved]
  - Epilepsy [Not Recovered/Not Resolved]

NARRATIVE: CASE EVENT DATE: 2016
